FAERS Safety Report 17766386 (Version 2)
Quarter: 2020Q3

REPORT INFORMATION
  Report Type: Spontaneous
  Country: FR (occurrence: FR)
  Receive Date: 20200511
  Receipt Date: 20200707
  Transmission Date: 20201102
  Serious: Yes (Death, Hospitalization)
  Sender: FDA-Public Use
  Company Number: FR-ACCORD-181348

PATIENT
  Age: 79 Year
  Sex: Male
  Weight: 76 kg

DRUGS (3)
  1. CARBOPLATIN ACCORD [Suspect]
     Active Substance: CARBOPLATIN
     Indication: LUNG ADENOCARCINOMA
     Route: 041
     Dates: start: 20191230, end: 20200323
  2. ALIMTA [Suspect]
     Active Substance: PEMETREXED DISODIUM
     Indication: LUNG ADENOCARCINOMA
     Dosage: STRENGTH  500 MG
     Route: 041
     Dates: start: 20191230, end: 20200323
  3. KEYTRUDA [Suspect]
     Active Substance: PEMBROLIZUMAB
     Indication: LUNG ADENOCARCINOMA
     Dosage: STRENGTH 50 MG
     Route: 041
     Dates: start: 20191230, end: 20200323

REACTIONS (4)
  - Dermatitis exfoliative generalised [Fatal]
  - Acute kidney injury [Fatal]
  - Myocarditis [Fatal]
  - Pyrexia [Unknown]

NARRATIVE: CASE EVENT DATE: 20200323
